FAERS Safety Report 8559298-0 (Version None)
Quarter: 2012Q3

REPORT INFORMATION
  Report Type: 
  Country: None (occurrence: None)
  Receive Date: 20120802
  Receipt Date: 20120730
  Transmission Date: 20120928
  Serious: Yes (Hospitalization, Other)
  Sender: FDA-Public Use
  Company Number: PHHY2009CA17819

PATIENT
  Sex: Male

DRUGS (4)
  1. SANDOSTATIN LAR [Suspect]
     Dosage: 60 MG, EVERY 3 WEEKS
     Route: 030
  2. SANDOSTATIN LAR [Suspect]
     Indication: CARCINOID TUMOUR
     Dosage: 30 MG, EEVRY 3 WEEKS
     Route: 030
     Dates: start: 20080918
  3. SANDOSTATIN LAR [Suspect]
     Dosage: 30 MG EVERY 3 WEEKS
     Route: 042
  4. SANDOSTATIN LAR [Suspect]
     Dosage: 30 MG, ONCE I A MONTH
     Route: 030

REACTIONS (7)
  - VERTIGO [None]
  - FLUSHING [None]
  - FEELING ABNORMAL [None]
  - STRESS [None]
  - NEPHROLITHIASIS [None]
  - NAUSEA [None]
  - HEART RATE INCREASED [None]
